FAERS Safety Report 25405275 (Version 3)
Quarter: 2025Q2

REPORT INFORMATION
  Report Type: Report from Study
  Country: US (occurrence: US)
  Receive Date: 20250606
  Receipt Date: 20250623
  Transmission Date: 20250717
  Serious: Yes (Other)
  Sender: ROCHE
  Company Number: US-ROCHE-10000298474

PATIENT
  Age: 52 Year
  Sex: Female

DRUGS (2)
  1. TRUXIMA [Suspect]
     Active Substance: RITUXIMAB-ABBS
     Indication: Neuromyelitis optica spectrum disorder
     Route: 065
  2. UPLIZNA [Concomitant]
     Active Substance: INEBILIZUMAB-CDON

REACTIONS (4)
  - Off label use [Unknown]
  - Immunosuppression [Unknown]
  - Illness [Unknown]
  - Neuromyelitis optica spectrum disorder [Recovered/Resolved]
